FAERS Safety Report 8327617-6 (Version None)
Quarter: 2012Q2

REPORT INFORMATION
  Report Type: 
  Country: None (occurrence: None)
  Receive Date: 20120502
  Receipt Date: 20120424
  Transmission Date: 20120825
  Serious: Yes (Hospitalization)
  Sender: FDA-Public Use
  Company Number: US-BAYER-201039881NA

PATIENT
  Age: 51 Year
  Sex: Female
  Weight: 70.295 kg

DRUGS (3)
  1. YASMIN [Suspect]
     Dosage: UNK
     Dates: start: 20080709, end: 20090205
  2. YAZ [Suspect]
     Indication: MENORRHAGIA
     Dosage: UNK UNK, QD
     Route: 048
     Dates: start: 20080709, end: 20090205
  3. DROSPIRENONE AND ETHINYL ESTRADIOL [Suspect]
     Dosage: UNK
     Dates: start: 20080709, end: 20090205

REACTIONS (2)
  - DEEP VEIN THROMBOSIS [None]
  - PULMONARY EMBOLISM [None]
